FAERS Safety Report 11717393 (Version 1)
Quarter: 2015Q4

REPORT INFORMATION
  Report Type: Spontaneous
  Country: US (occurrence: US)
  Receive Date: 20151110
  Receipt Date: 20151110
  Transmission Date: 20160304
  Serious: Yes (Other)
  Sender: FDA-Public Use
  Company Number: US-LUPIN PHARMACEUTICALS INC.-E2B_00004434

PATIENT
  Age: 83 Year
  Sex: Male

DRUGS (2)
  1. LISINOPRIL AND HYDROCHLOROTHIAZIDE [Suspect]
     Active Substance: HYDROCHLOROTHIAZIDE\LISINOPRIL
     Indication: HYPERTENSION
     Route: 048
  2. LISINOPRIL AND HYDROCHLOROTHIAZIDE [Suspect]
     Active Substance: HYDROCHLOROTHIAZIDE\LISINOPRIL
     Dosage: SPLITTING THE TABLETS IN HALVES AND ^4S^ AND TAKING IT AS NEEDED
     Route: 048

REACTIONS (6)
  - Fall [Recovered/Resolved]
  - Ankle fracture [Recovered/Resolved]
  - Wrong technique in product usage process [Unknown]
  - Loss of consciousness [Recovered/Resolved]
  - Feeling abnormal [Not Recovered/Not Resolved]
  - Hypotension [Not Recovered/Not Resolved]
